FAERS Safety Report 24451991 (Version 1)
Quarter: 2024Q4

REPORT INFORMATION
  Report Type: Spontaneous
  Country: US (occurrence: US)
  Receive Date: 20241017
  Receipt Date: 20241017
  Transmission Date: 20250115
  Serious: No
  Sender: PFIZER
  Company Number: US-PFIZER INC-PV202400134004

PATIENT
  Age: 32 Year
  Sex: Male

DRUGS (1)
  1. ZAVZPRET [Suspect]
     Active Substance: ZAVEGEPANT HYDROCHLORIDE
     Dosage: UNK, SINGLE (1 SPRAY IN 1 NOSTRIL AS SINGLE DOSE)
     Route: 045

REACTIONS (1)
  - Nausea [Unknown]
